FAERS Safety Report 10175523 (Version 1)
Quarter: 2014Q2

REPORT INFORMATION
  Report Type: Spontaneous
  Country: TW (occurrence: TW)
  Receive Date: 20140516
  Receipt Date: 20140516
  Transmission Date: 20141212
  Serious: Yes (Death, Hospitalization)
  Sender: FDA-Public Use
  Company Number: PHHY2014TW056028

PATIENT
  Age: 69 Year
  Sex: Male

DRUGS (4)
  1. FLUCONAZOLE [Suspect]
     Indication: ANTIFUNGAL TREATMENT
     Dosage: CUMULATIVE DOSE 33 (UNITS UNKNOWN)
     Route: 048
  2. KETOCONAZOLE [Suspect]
     Indication: ANTIFUNGAL TREATMENT
  3. ANTIBIOTICS [Concomitant]
  4. ANTIEPILEPTICS [Concomitant]

REACTIONS (1)
  - Drug-induced liver injury [Fatal]
